FAERS Safety Report 7055665-5 (Version None)
Quarter: 2010Q4

REPORT INFORMATION
  Report Type: 
  Country: None (occurrence: None)
  Receive Date: 20101021
  Receipt Date: 20101018
  Transmission Date: 20110411
  Serious: Yes (Death, Life-Threatening, Hospitalization)
  Sender: FDA-Public Use
  Company Number: JP-BAYER-200912316BYL

PATIENT
  Age: 72 Year
  Sex: Male
  Weight: 47 kg

DRUGS (10)
  1. NEXAVAR [Suspect]
     Indication: HEPATIC NEOPLASM MALIGNANT
     Dosage: TOTAL DAILY DOSE: 800 MG  UNIT DOSE: 200 MG
     Route: 048
     Dates: start: 20090703, end: 20090707
  2. FLUITRAN [Concomitant]
     Dosage: TOTAL DAILY DOSE: 1 MG  UNIT DOSE: 2 MG
     Route: 048
  3. URSO 250 [Concomitant]
     Dosage: UNIT DOSE: 50 MG
     Route: 048
  4. LASIX [Concomitant]
     Dosage: TOTAL DAILY DOSE: 10 MG  UNIT DOSE: 20 MG
     Route: 048
  5. ALDACTONE [Concomitant]
     Dosage: SICNE BEFORE ADMINISTRATION
     Route: 048
  6. BLOPRESS [Concomitant]
     Dosage: TOTAL DAILY DOSE: 8 MG  UNIT DOSE: 8 MG
     Route: 048
     Dates: end: 20090727
  7. CONIEL [Concomitant]
     Dosage: UNIT DOSE: 2 MG
     Route: 048
     Dates: end: 20090727
  8. CISPLATIN [Concomitant]
     Indication: REGIONAL CHEMOTHERAPY
     Route: 025
     Dates: start: 20090623, end: 20090623
  9. ALOSITOL [Concomitant]
     Dosage: TOTAL DAILY DOSE: 100 MG  UNIT DOSE: 100 MG
     Route: 048
  10. MYSLEE [Concomitant]
     Dosage: UNIT DOSE: 10 MG
     Route: 048

REACTIONS (7)
  - BLOOD BILIRUBIN INCREASED [None]
  - BLOOD UREA INCREASED [None]
  - GASTRIC ULCER HAEMORRHAGE [None]
  - HEPATIC ENCEPHALOPATHY [None]
  - HEPATIC NEOPLASM MALIGNANT [None]
  - PALMAR-PLANTAR ERYTHRODYSAESTHESIA SYNDROME [None]
  - TUMOUR LYSIS SYNDROME [None]
